FAERS Safety Report 10034751 (Version 2)
Quarter: 2014Q2

REPORT INFORMATION
  Report Type: Spontaneous
  Country: FR (occurrence: FR)
  Receive Date: 20140325
  Receipt Date: 20140605
  Transmission Date: 20141212
  Serious: Yes (Hospitalization)
  Sender: FDA-Public Use
  Company Number: FR-NOVOPROD-403570

PATIENT
  Age: 73 Year
  Sex: Male

DRUGS (13)
  1. NOVOMIX 30 FLEXPEN [Suspect]
     Indication: TYPE 2 DIABETES MELLITUS
     Dosage: UNK
     Route: 058
  2. LOXAPAC                            /00401801/ [Suspect]
     Indication: PRODUCT USED FOR UNKNOWN INDICATION
     Dosage: UNK
     Route: 048
     Dates: start: 20140116, end: 20140214
  3. TAREG [Suspect]
     Indication: PRODUCT USED FOR UNKNOWN INDICATION
     Dosage: 80 MG, QD
     Route: 048
  4. TAREG [Suspect]
     Dosage: 80 MG, QD
     Route: 048
     Dates: start: 20140129, end: 20140212
  5. EUPANTOL [Suspect]
     Indication: PRODUCT USED FOR UNKNOWN INDICATION
     Dosage: 20 MG, QD
     Route: 048
     Dates: start: 20140115, end: 20140212
  6. EUPANTOL [Suspect]
     Dosage: 40 MG, QD
     Route: 048
     Dates: start: 20140224
  7. SERESTA [Suspect]
     Indication: PRODUCT USED FOR UNKNOWN INDICATION
     Dosage: 10 MG, QD
     Route: 048
  8. ZANIDIP [Suspect]
     Indication: PRODUCT USED FOR UNKNOWN INDICATION
     Dosage: UNK
     Route: 048
  9. APROVEL [Concomitant]
     Dosage: UNK
     Route: 065
     Dates: start: 20140115, end: 20140129
  10. APROVEL [Concomitant]
     Dosage: UNK
     Route: 065
     Dates: start: 20140212
  11. DIFFU-K [Concomitant]
     Dosage: UNK
     Route: 065
     Dates: start: 20140129, end: 20140203
  12. DIFFU-K [Concomitant]
     Dosage: UNK
     Route: 065
  13. GRANOCYTE [Concomitant]
     Dosage: UNK
     Route: 065
     Dates: start: 20140123, end: 20140125

REACTIONS (2)
  - Neutropenia [Not Recovered/Not Resolved]
  - Neutropenia [Unknown]
